FAERS Safety Report 16301515 (Version 2)
Quarter: 2019Q2

REPORT INFORMATION
  Report Type: Report from Study
  Country: US (occurrence: US)
  Receive Date: 20190511
  Receipt Date: 20190617
  Transmission Date: 20190711
  Serious: Yes (Other)
  Sender: FDA-Public Use
  Company Number: PHEH2019US019734

PATIENT
  Sex: Male

DRUGS (1)
  1. GILENYA [Suspect]
     Active Substance: FINGOLIMOD HYDROCHLORIDE
     Indication: MULTIPLE SCLEROSIS
     Dosage: 0.5 MG, QD
     Route: 048
     Dates: start: 20160620

REACTIONS (10)
  - Muscular weakness [Unknown]
  - Nausea [Unknown]
  - Feeling abnormal [Unknown]
  - Memory impairment [Unknown]
  - Pain of skin [Unknown]
  - Dysstasia [Unknown]
  - Hemiparesis [Unknown]
  - Vomiting [Unknown]
  - Skin lesion [Unknown]
  - Hypoaesthesia [Unknown]
